FAERS Safety Report 6579150-X (Version None)
Quarter: 2010Q1

REPORT INFORMATION
  Report Type: 
  Country: None (occurrence: None)
  Receive Date: 20100212
  Receipt Date: 20100212
  Transmission Date: 20100710
  Serious: Yes (Death, Hospitalization, Other)
  Sender: FDA-Public Use
  Company Number: DE-B.I. PHARMACEUTICALS,INC./RIDGEFIELD-2010-DE-00570DE

PATIENT
  Sex: Female

DRUGS (7)
  1. SPIRIVA [Suspect]
     Indication: CHRONIC OBSTRUCTIVE PULMONARY DISEASE
     Route: 055
  2. ASS 100 MG [Concomitant]
  3. ISOPTIN KHK RETARD 120 MG [Concomitant]
  4. DIURETICS [Concomitant]
  5. VENTILASTIN [Concomitant]
  6. NOVOPULMON [Concomitant]
  7. LACTULOSE [Concomitant]

REACTIONS (2)
  - DEATH [None]
  - DEVICE MISUSE [None]
